FAERS Safety Report 13968131 (Version 1)
Quarter: 2017Q3

REPORT INFORMATION
  Report Type: Spontaneous
  Country: US (occurrence: US)
  Receive Date: 20170914
  Receipt Date: 20170914
  Transmission Date: 20171128
  Serious: Yes (Other)
  Sender: FDA-Public Use
  Company Number: US-KOWA-17US000131

PATIENT

DRUGS (1)
  1. LIVALO [Suspect]
     Active Substance: PITAVASTATIN CALCIUM
     Indication: PRODUCT USED FOR UNKNOWN INDICATION
     Dosage: 2 MG, QD

REACTIONS (4)
  - Breast mass [Not Recovered/Not Resolved]
  - Liver function test increased [Recovered/Resolved]
  - Pruritus [Unknown]
  - Hepatic failure [Recovered/Resolved]
